FAERS Safety Report 8473070-1 (Version None)
Quarter: 2012Q2

REPORT INFORMATION
  Report Type: 
  Country: None (occurrence: None)
  Receive Date: 20120627
  Receipt Date: 20120621
  Transmission Date: 20120825
  Serious: Yes (Death, Other)
  Sender: FDA-Public Use
  Company Number: JP-ROXANE LABORATORIES, INC.-2012-RO-01457RO

PATIENT
  Age: 65 Year
  Sex: Female

DRUGS (5)
  1. GANCICLOVIR [Suspect]
     Indication: CYTOMEGALOVIRUS INFECTION
     Route: 042
  2. STEROID [Concomitant]
     Indication: LIVER TRANSPLANT
  3. MYCOPHENOLATE MOFETIL [Suspect]
     Indication: LIVER TRANSPLANT
  4. FOSCARNET [Suspect]
     Indication: CYTOMEGALOVIRUS INFECTION
  5. TACROLIMUS [Suspect]
     Indication: LIVER TRANSPLANT

REACTIONS (4)
  - PANCYTOPENIA [None]
  - HISTIOCYTOSIS HAEMATOPHAGIC [None]
  - INTESTINAL PERFORATION [None]
  - CYTOMEGALOVIRUS INFECTION [None]
